FAERS Safety Report 6031592-7 (Version None)
Quarter: 2008Q4

REPORT INFORMATION
  Report Type: 
  Country: None (occurrence: None)
  Receive Date: 20081229
  Receipt Date: 20080530
  Transmission Date: 20090506
  Serious: Yes (Hospitalization)
  Sender: FDA-Public Use
  Company Number: 172270USA

PATIENT
  Age: 26 Year
  Sex: Male

DRUGS (2)
  1. CLOZAPINE [Suspect]
     Dosage: (100 MG),ORAL
     Route: 048
  2. OXYBUTYNIN CHLORIDE [Suspect]
     Indication: DROOLING
     Dosage: ORAL
     Route: 048
     Dates: start: 20080401

REACTIONS (2)
  - CONSTIPATION [None]
  - INTESTINAL OBSTRUCTION [None]
